FAERS Safety Report 4633966-5 (Version None)
Quarter: 2005Q2

REPORT INFORMATION
  Report Type: 
  Country: None (occurrence: None)
  Receive Date: 20050412
  Receipt Date: 20050107
  Transmission Date: 20051028
  Serious: Yes (Death)
  Sender: FDA-Public Use
  Company Number: 2005S1000087

PATIENT
  Age: 42 Year
  Sex: Male

DRUGS (5)
  1. CLOZAPINE [Suspect]
     Indication: SCHIZOPHRENIA, PARANOID TYPE
     Dosage: 300 MG; BID; PO
     Route: 048
     Dates: start: 20040312, end: 20041212
  2. FLUVOXAMINE MALEATE [Concomitant]
  3. AMLODIPINE BESYLATE [Concomitant]
  4. VALPROATE SODIUM [Concomitant]
  5. LOVASTATIN [Concomitant]

REACTIONS (1)
  - CEREBRAL HAEMORRHAGE [None]
